FAERS Safety Report 6667010-5 (Version None)
Quarter: 2010Q1

REPORT INFORMATION
  Report Type: 
  Country: None (occurrence: None)
  Receive Date: 20100331
  Receipt Date: 20100326
  Transmission Date: 20100710
  Serious: Yes (Death)
  Sender: FDA-Public Use
  Company Number: 2010SP018404

PATIENT
  Age: 67 Year
  Sex: Male
  Weight: 76 kg

DRUGS (2)
  1. TEMODAL [Suspect]
     Indication: RADIOTHERAPY
     Dosage: 75 MG/M2; QD; PO
     Route: 048
     Dates: start: 20091201, end: 20100101
  2. DEXAMETHASONE [Concomitant]

REACTIONS (2)
  - ACUTE HEPATIC FAILURE [None]
  - LEUKOPENIA [None]
